FAERS Safety Report 20754899 (Version 4)
Quarter: 2022Q3

REPORT INFORMATION
  Report Type: Spontaneous
  Country: IT (occurrence: IT)
  Receive Date: 20220427
  Receipt Date: 20220712
  Transmission Date: 20221026
  Serious: Yes (Life-Threatening, Hospitalization, Other)
  Sender: FDA-Public Use
  Company Number: IT-GLAXOSMITHKLINE-IT2022GSK061983

PATIENT
  Age: 1 Year
  Sex: Male

DRUGS (3)
  1. AMOXICILLIN\CLAVULANIC ACID [Suspect]
     Active Substance: AMOXICILLIN\CLAVULANIC ACID
     Indication: Upper respiratory tract infection
     Dosage: UNK  (1 WEEK)
     Route: 065
  2. MEASLES-MUMPS-RUBELLA VIRUS VACCINE [Suspect]
     Active Substance: MEASLES-MUMPS-RUBELLA VIRUS VACCINE
     Indication: Prophylaxis
     Dosage: UNK
     Route: 065
  3. MEASLES-MUMPS-RUBELLA VIRUS VACCINE [Suspect]
     Active Substance: MEASLES-MUMPS-RUBELLA VIRUS VACCINE
     Indication: Immunisation

REACTIONS (11)
  - Linear IgA disease [Recovered/Resolved]
  - Condition aggravated [Unknown]
  - Dermatitis bullous [Recovered/Resolved]
  - Blister [Recovered/Resolved]
  - Emotional distress [Unknown]
  - Pruritus [Unknown]
  - Restlessness [Unknown]
  - Rash vesicular [Unknown]
  - Scab [Recovered/Resolved]
  - Upper respiratory tract infection [Unknown]
  - Erythema [Recovered/Resolved]
